FAERS Safety Report 12949129 (Version 1)
Quarter: 2016Q4

REPORT INFORMATION
  Report Type: Spontaneous
  Country: US (occurrence: US)
  Receive Date: 20161117
  Receipt Date: 20161117
  Transmission Date: 20170207
  Serious: No
  Sender: FDA-Public Use
  Company Number: US-PFIZER INC-2016531427

PATIENT
  Sex: Female

DRUGS (3)
  1. VIOXX [Suspect]
     Active Substance: ROFECOXIB
     Dosage: UNKNOWN DOSE
  2. FELDENE [Suspect]
     Active Substance: PIROXICAM
     Dosage: UNKNOWN DOSE
  3. ANAPROX [Suspect]
     Active Substance: NAPROXEN SODIUM
     Dosage: UNKNOWN DOSE

REACTIONS (1)
  - Drug hypersensitivity [Unknown]
